FAERS Safety Report 6850960-4 (Version None)
Quarter: 2010Q3

REPORT INFORMATION
  Report Type: 
  Country: None (occurrence: None)
  Receive Date: 20100716
  Receipt Date: 20071024
  Transmission Date: 20110219
  Serious: No
  Sender: FDA-Public Use
  Company Number: US-PFIZER INC-2007091114

PATIENT
  Sex: Female

DRUGS (4)
  1. CHANTIX [Suspect]
  2. CARDIOVASCULAR SYSTEM DRUGS [Suspect]
     Indication: BLOOD PRESSURE
  3. DRUG, UNSPECIFIED [Suspect]
     Indication: BLOOD CHOLESTEROL
  4. NICOTINE [Suspect]
     Indication: NICOTINE DEPENDENCE
     Dates: start: 20071023

REACTIONS (1)
  - NAUSEA [None]
